FAERS Safety Report 4746664-4 (Version None)
Quarter: 2005Q3

REPORT INFORMATION
  Report Type: 
  Country: None (occurrence: None)
  Receive Date: 20050815
  Receipt Date: 20050803
  Transmission Date: 20060218
  Serious: Yes (Death)
  Sender: FDA-Public Use
  Company Number: 2005110021

PATIENT
  Age: 18 Year
  Sex: Male
  Weight: 83.9154 kg

DRUGS (1)
  1. SUDAFED 12 HOUR [Suspect]
     Indication: MULTIPLE ALLERGIES
     Dosage: WHOLE BOX, ORAL
     Route: 048
     Dates: start: 19950901, end: 19950901

REACTIONS (3)
  - CARDIAC FAILURE CONGESTIVE [None]
  - NAUSEA [None]
  - VOMITING [None]
